FAERS Safety Report 23230287 (Version 1)
Quarter: 2023Q4

REPORT INFORMATION
  Report Type: Report from Study
  Country: KR (occurrence: KR)
  Receive Date: 20231127
  Receipt Date: 20231127
  Transmission Date: 20240110
  Serious: Yes (Other)
  Sender: FDA-Public Use
  Company Number: KR-TAKEDA-2023TUS113521

PATIENT
  Sex: Female

DRUGS (5)
  1. BRIGATINIB [Suspect]
     Active Substance: BRIGATINIB
     Indication: Non-small cell lung cancer
     Dosage: 90 MILLIGRAM, QD
     Route: 065
     Dates: start: 20220622, end: 20220703
  2. BRIGATINIB [Suspect]
     Active Substance: BRIGATINIB
     Dosage: 180 MILLIGRAM, QD
     Route: 065
     Dates: start: 20220704
  3. SURFOLASE [Concomitant]
     Indication: Haemoptysis
     Dosage: UNK
     Route: 048
     Dates: start: 20220526
  4. Pennel [Concomitant]
     Indication: Aspartate aminotransferase increased
     Dosage: UNK
     Route: 048
     Dates: start: 20220829, end: 20230313
  5. MEGESTROL ACETATE [Concomitant]
     Active Substance: MEGESTROL ACETATE
     Indication: Decreased appetite
     Dosage: 5.2 MILLIGRAM, QD
     Route: 048
     Dates: start: 20220526

REACTIONS (1)
  - Delirium [Recovered/Resolved]

NARRATIVE: CASE EVENT DATE: 20221010
